FAERS Safety Report 4327862-0 (Version None)
Quarter: 2004Q1

REPORT INFORMATION
  Report Type: 
  Country: None (occurrence: None)
  Receive Date: 20040325
  Receipt Date: 20040319
  Transmission Date: 20041129
  Serious: Yes (Life-Threatening, Hospitalization)
  Sender: FDA-Public Use
  Company Number: INOX-PR-0403S-0002

PATIENT
  Age: 16 Year
  Sex: Female
  Weight: 90.7194 kg

DRUGS (5)
  1. INDIUM IN-111 OXYQUINOLINE [Suspect]
     Indication: ABSCESS
     Dosage: 37 MBQ, SINGLE DOSE, I.V.
     Route: 042
     Dates: start: 20040219, end: 20040219
  2. FLAGYL [Concomitant]
  3. CIPROFLOXACIN HYDROCHLORIDE (CIPRO) [Concomitant]
  4. VANCOMYCIN [Concomitant]
  5. UNSPECIFIED BIRTH CONTROL [Concomitant]

REACTIONS (3)
  - BRONCHOSPASM [None]
  - BURNING SENSATION [None]
  - CARDIAC ARREST [None]
